FAERS Safety Report 10479751 (Version 1)
Quarter: 2014Q3

REPORT INFORMATION
  Report Type: Report from Study
  Country: US (occurrence: US)
  Receive Date: 20140927
  Receipt Date: 20140927
  Transmission Date: 20150326
  Serious: Yes (Other)
  Sender: FDA-Public Use
  Company Number: US-ALEXION PHARMACEUTICALS INC-A200700314

PATIENT
  Sex: Male

DRUGS (3)
  1. EXJADE [Concomitant]
     Active Substance: DEFERASIROX
     Dosage: UNK
     Route: 048
  2. SOLIRIS [Suspect]
     Active Substance: ECULIZUMAB
     Indication: PAROXYSMAL NOCTURNAL HAEMOGLOBINURIA
     Dosage: UNK
     Route: 042
  3. HYDROCHLOROTHIAZID [Concomitant]
     Active Substance: HYDROCHLOROTHIAZIDE
     Dosage: UNK
     Route: 048

REACTIONS (21)
  - Blood lactate dehydrogenase increased [Unknown]
  - Emotional disorder [Unknown]
  - Blood potassium decreased [Unknown]
  - Haemolysis [Unknown]
  - Arthralgia [Unknown]
  - Haemoglobin decreased [Unknown]
  - Haemoglobinuria [Unknown]
  - Skin infection [Unknown]
  - Fatigue [Recovering/Resolving]
  - Cough [Unknown]
  - Chromaturia [Unknown]
  - Arthropod bite [Unknown]
  - Dental care [Unknown]
  - Pain in extremity [Unknown]
  - Headache [Unknown]
  - Viral infection [Unknown]
  - Muscle spasms [Unknown]
  - Anaemia [Unknown]
  - Haematocrit decreased [Unknown]
  - Wound [Unknown]
  - Iron overload [Unknown]
